FAERS Safety Report 16914519 (Version 1)
Quarter: 2019Q4

REPORT INFORMATION
  Report Type: Spontaneous
  Country: GB (occurrence: GB)
  Receive Date: 20191014
  Receipt Date: 20191014
  Transmission Date: 20200122
  Serious: Yes (Hospitalization)
  Sender: FDA-Public Use
  Company Number: GB-MYLANLABS-2019M1095126

PATIENT
  Age: 65 Year
  Sex: Female

DRUGS (13)
  1. ATORVASTATIN [Concomitant]
     Active Substance: ATORVASTATIN
  2. PARACETAMOL [Concomitant]
     Active Substance: ACETAMINOPHEN
  3. AMLODIPINE [Concomitant]
     Active Substance: AMLODIPINE BESYLATE
  4. ENOXAPARIN [Concomitant]
     Active Substance: ENOXAPARIN
  5. PROMAZINE [Suspect]
     Active Substance: PROMAZINE
     Indication: AGITATION
     Route: 048
     Dates: start: 20180801, end: 20190601
  6. LORAZEPAM. [Concomitant]
     Active Substance: LORAZEPAM
  7. HYDROXYCARBAMIDE [Concomitant]
     Active Substance: HYDROXYUREA
  8. TRAZODONE [Suspect]
     Active Substance: TRAZODONE HYDROCHLORIDE
     Indication: DEPRESSION
     Dosage: NIGHT
     Route: 048
     Dates: start: 20181101, end: 20190601
  9. THIAMINE. [Concomitant]
     Active Substance: THIAMINE
  10. COLECALCIFEROL [Concomitant]
     Active Substance: CHOLECALCIFEROL
  11. GLYCERYL TRINITRATE [Concomitant]
     Active Substance: NITROGLYCERIN
  12. PREGABALIN. [Suspect]
     Active Substance: PREGABALIN
     Indication: NEURALGIA
     Dosage: NIGHT
     Route: 048
     Dates: start: 20190201, end: 20190601
  13. CLOPIDOGREL [Concomitant]
     Active Substance: CLOPIDOGREL BISULFATE

REACTIONS (3)
  - Electrocardiogram QT prolonged [Recovered/Resolved]
  - Intentional overdose [Unknown]
  - Alcohol interaction [Unknown]

NARRATIVE: CASE EVENT DATE: 20190531
